FAERS Safety Report 23683188 (Version 2)
Quarter: 2024Q2

REPORT INFORMATION
  Report Type: Spontaneous
  Country: US (occurrence: US)
  Receive Date: 20240328
  Receipt Date: 20240611
  Transmission Date: 20240716
  Serious: Yes (Hospitalization, Other)
  Sender: FDA-Public Use
  Company Number: US-SA-SAC20240325000328

PATIENT
  Age: 70 Year
  Sex: Female
  Weight: 72.1 kg

DRUGS (37)
  1. THYMOGLOBULIN [Suspect]
     Active Substance: LAPINE T-LYMPHOCYTE IMMUNE GLOBULIN
     Indication: Prophylaxis against transplant rejection
     Dosage: 1 MG/KG, 1X
     Route: 065
     Dates: start: 20231228, end: 20231228
  2. THYMOGLOBULIN [Suspect]
     Active Substance: LAPINE T-LYMPHOCYTE IMMUNE GLOBULIN
     Dosage: 3.12 MG/KG (TOTAL DOSE: 225 MG), 1X
     Route: 065
     Dates: start: 20231230, end: 20231230
  3. ACETAMINOPHEN [Concomitant]
     Active Substance: ACETAMINOPHEN
     Dosage: 1000 MG, Q6H
  4. ACETAMINOPHEN [Concomitant]
     Active Substance: ACETAMINOPHEN
     Dosage: 650 MG, Q6H SCH
     Dates: start: 20231230
  5. ACETAMINOPHEN [Concomitant]
     Active Substance: ACETAMINOPHEN
     Dosage: 650 MG, DAILY PRN
  6. DIPHENHYDRAMINE [Concomitant]
     Active Substance: DIPHENHYDRAMINE
     Dosage: 25 MG, 1X
     Dates: start: 20231230, end: 20231230
  7. DIPHENHYDRAMINE [Concomitant]
     Active Substance: DIPHENHYDRAMINE
     Dosage: UNK UNK, PRN
  8. METHYLPREDNISOLONE SODIUM SUCCINATE [Concomitant]
     Active Substance: METHYLPREDNISOLONE SODIUM SUCCINATE
     Dosage: 125 MG, 1X
     Dates: start: 20231230, end: 20231230
  9. METHYLPREDNISOLONE SODIUM SUCCINATE [Concomitant]
     Active Substance: METHYLPREDNISOLONE SODIUM SUCCINATE
     Dosage: 500 MG, 1X
  10. METHYLPREDNISOLONE SODIUM SUCCINATE [Concomitant]
     Active Substance: METHYLPREDNISOLONE SODIUM SUCCINATE
     Dosage: 250 MG, 1X
  11. PREDNISONE [Concomitant]
     Active Substance: PREDNISONE
     Dosage: 50 MG, QD
     Dates: start: 20231231, end: 20231231
  12. PREDNISONE [Concomitant]
     Active Substance: PREDNISONE
     Dosage: 25 MG, QD
     Dates: start: 20240101, end: 20240101
  13. PREDNISONE [Concomitant]
     Active Substance: PREDNISONE
     Dosage: 10 MG, QD
     Dates: start: 20240102, end: 20240102
  14. BUPIVACAINE [Concomitant]
     Active Substance: BUPIVACAINE
     Dosage: 20 ML, 1X
  15. CALCIUM CITRATE;VITAMIN D NOS [Concomitant]
     Dosage: 1 DF, BID
  16. DEXTROSE [Concomitant]
     Active Substance: DEXTROSE\DEXTROSE MONOHYDRATE
     Dosage: UNK
     Dates: start: 20231229
  17. DEXTROSE [Concomitant]
     Active Substance: DEXTROSE\DEXTROSE MONOHYDRATE
     Dosage: 25 ML, PRN
  18. DEXTROSE [Concomitant]
     Active Substance: DEXTROSE\DEXTROSE MONOHYDRATE
     Dosage: 50 ML, PRN
  19. CLOTRIMAZOLE [Concomitant]
     Active Substance: CLOTRIMAZOLE
     Dosage: 10 MG, Q12H SCH
  20. FAMOTIDINE [Concomitant]
     Active Substance: FAMOTIDINE
     Dosage: 20 MG, HS
  21. INSULIN LISPRO [Concomitant]
     Active Substance: INSULIN LISPRO
     Dosage: 0-4 UNITS, Q HS
  22. INSULIN LISPRO [Concomitant]
     Active Substance: INSULIN LISPRO
     Dosage: 0-5 UNITS, TID BEFORE MEALS
  23. MYCOPHENOLATE SODIUM [Concomitant]
     Active Substance: MYCOPHENOLATE SODIUM
     Dosage: 720 MG, Q12H SCH
  24. POLYETHYLENE GLYCOL 3350 [Concomitant]
     Active Substance: POLYETHYLENE GLYCOL 3350
     Dosage: 17 G, BID
  25. SULFAMETHOXAZOLE AND TRIMETHOPRIM [Concomitant]
     Active Substance: SULFAMETHOXAZOLE\TRIMETHOPRIM
     Dosage: 1 TABLET, Q MWF (MONDAY, WEDNESDAY, FRIDAY)
  26. LACTATED RINGERS SOLUTION [Concomitant]
     Active Substance: CALCIUM CHLORIDE\POTASSIUM CHLORIDE\SODIUM CHLORIDE\SODIUM LACTATE
     Dosage: 50 ML/HR
     Dates: end: 20231229
  27. VALGANCICLOVIR [Concomitant]
     Active Substance: VALGANCICLOVIR
     Dosage: 450 MG, Q3D (Q72H)
     Dates: start: 20240102
  28. HYDROMORPHONE [Concomitant]
     Active Substance: HYDROMORPHONE
     Dosage: 1 MG/ML PCA, , PCA ANDHYDROMORPHONE PCA CLINICIAN, 0.2 MG, Q5 MIN PRN
  29. GLUCAGON [Concomitant]
     Active Substance: GLUCAGON\GLUCAGON HYDROCHLORIDE\WATER
     Dosage: 0.5 MG, PRN
  30. GLUCAGON [Concomitant]
     Active Substance: GLUCAGON\GLUCAGON HYDROCHLORIDE\WATER
     Dosage: 1 MG, PRN
  31. NALOXONE [Concomitant]
     Active Substance: NALOXONE
     Dosage: 0.08 MG, Q2 MIN PRN
  32. SIMETHICONE (DIMETHICONE) [Concomitant]
     Active Substance: DIMETHICONE
     Dosage: 80MG, QID PRN
  33. SODIUM CHLORIDE [Concomitant]
     Active Substance: SODIUM CHLORIDE
     Dosage: 10 ML/HR
     Dates: end: 20231229
  34. SODIUM CHLORIDE [Concomitant]
     Active Substance: SODIUM CHLORIDE
     Dosage: 10 ML/HR
  35. SODIUM CHLORIDE [Concomitant]
     Active Substance: SODIUM CHLORIDE
     Dosage: 0-150 ML/HR, CONTINUOUS, LAST RATE: 50 ML/HR
     Dates: end: 20231229
  36. INSULIN REGULAR [INSULIN] [Concomitant]
     Dosage: 0-19 UNITS/HR, CONTINUOUS, LAST RATE: 4 UNITS/HR
     Dates: end: 20231229
  37. SENNA LEAF [Concomitant]
     Active Substance: SENNA LEAF
     Dosage: 17.2 MG, HS

REACTIONS (5)
  - Renal haemorrhage [Unknown]
  - Thrombocytopenia [Recovered/Resolved]
  - Platelet count decreased [Unknown]
  - White blood cell count decreased [Unknown]
  - Haemoglobin decreased [Unknown]

NARRATIVE: CASE EVENT DATE: 20231228
